FAERS Safety Report 6062120-8 (Version None)
Quarter: 2009Q1

REPORT INFORMATION
  Report Type: 
  Country: None (occurrence: None)
  Receive Date: 20090203
  Receipt Date: 20090123
  Transmission Date: 20090719
  Serious: Yes (Other)
  Sender: FDA-Public Use
  Company Number: JP-BAYER-200910223BYL

PATIENT
  Age: 61 Year
  Sex: Female
  Weight: 46 kg

DRUGS (14)
  1. NEXAVAR [Suspect]
     Indication: RENAL CELL CARCINOMA STAGE IV
     Dosage: UNIT DOSE: 200 MG
     Route: 048
     Dates: start: 20080715, end: 20080908
  2. OIF [Concomitant]
     Dosage: TOTAL DAILY DOSE: 5 MIU  UNIT DOSE: 5 MIU
     Route: 065
  3. CALONAL [Concomitant]
     Indication: PYREXIA
     Route: 048
  4. DECADRON [Concomitant]
     Dosage: TOTAL DAILY DOSE: 1 MG
     Route: 048
     Dates: start: 20080603
  5. GASTER [Concomitant]
     Dosage: TOTAL DAILY DOSE: 40 MG
     Route: 048
     Dates: start: 20080603
  6. ISOBIDE [Concomitant]
     Dosage: AS USED: 45 ML
     Route: 049
     Dates: start: 20080603
  7. MYSLEE [Concomitant]
     Indication: INSOMNIA
     Route: 048
     Dates: start: 20080701
  8. DEXALTIN [Concomitant]
     Route: 049
     Dates: start: 20080719
  9. PANTOSIN [Concomitant]
     Dosage: TOTAL DAILY DOSE: 3 G
     Route: 048
     Dates: start: 20080725
  10. MAGNESIUM OXIDE [Concomitant]
     Route: 048
     Dates: start: 20080725
  11. NEGMIN [Concomitant]
     Route: 049
     Dates: start: 20080727
  12. LECICARBON [Concomitant]
     Route: 054
     Dates: start: 20080728
  13. THERADIA [Concomitant]
     Indication: WOUND
     Route: 061
     Dates: start: 20080812
  14. HIRUDOID SOFT [Concomitant]
     Indication: PALMAR-PLANTAR ERYTHRODYSAESTHESIA SYNDROME

REACTIONS (2)
  - HEPATIC FUNCTION ABNORMAL [None]
  - PALMAR-PLANTAR ERYTHRODYSAESTHESIA SYNDROME [None]
